FAERS Safety Report 20852720 (Version 3)
Quarter: 2022Q2

REPORT INFORMATION
  Report Type: Spontaneous
  Country: US (occurrence: US)
  Receive Date: 20220520
  Receipt Date: 20220620
  Transmission Date: 20220721
  Serious: No
  Sender: FDA-Public Use
  Company Number: US-ELI_LILLY_AND_COMPANY-US202205008469

PATIENT
  Sex: Female

DRUGS (8)
  1. EMGALITY [Suspect]
     Active Substance: GALCANEZUMAB-GNLM
     Indication: Migraine
     Dosage: 120 MG, UNKNOWN
     Route: 065
     Dates: start: 2021
  2. EMGALITY [Suspect]
     Active Substance: GALCANEZUMAB-GNLM
     Indication: Migraine
     Dosage: 120 MG, UNKNOWN
     Route: 065
     Dates: start: 2021
  3. EMGALITY [Suspect]
     Active Substance: GALCANEZUMAB-GNLM
     Dosage: 120 MG, UNKNOWN
     Route: 065
     Dates: start: 2021
  4. EMGALITY [Suspect]
     Active Substance: GALCANEZUMAB-GNLM
     Dosage: 120 MG, UNKNOWN
     Route: 065
     Dates: start: 2021
  5. RIZATRIPTAN [Concomitant]
     Active Substance: RIZATRIPTAN
     Indication: Headache
     Dosage: UNK UNK, UNKNOWN
     Route: 065
  6. NAPROXEN [Concomitant]
     Active Substance: NAPROXEN
     Indication: Headache
     Dosage: UNK UNK, UNKNOWN
     Route: 065
  7. SUMATRIPTAN [Concomitant]
     Active Substance: SUMATRIPTAN
     Indication: Headache
     Dosage: UNK UNK, UNKNOWN
     Route: 065
  8. NURTEC ODT [Concomitant]
     Active Substance: RIMEGEPANT SULFATE
     Indication: Headache
     Dosage: UNK UNK, UNKNOWN
     Route: 065

REACTIONS (3)
  - Headache [Not Recovered/Not Resolved]
  - Injection site pain [Unknown]
  - Product dose omission issue [Unknown]
